FAERS Safety Report 23988712 (Version 1)
Quarter: 2024Q2

REPORT INFORMATION
  Report Type: Spontaneous
  Country: US (occurrence: US)
  Receive Date: 20240619
  Receipt Date: 20240619
  Transmission Date: 20240716
  Serious: Yes (Other)
  Sender: FDA-Public Use
  Company Number: US-TEVA-VS-3209420

PATIENT
  Age: 28 Year
  Sex: Female

DRUGS (3)
  1. AUSTEDO [Suspect]
     Active Substance: DEUTETRABENAZINE
     Indication: Product used for unknown indication
     Route: 065
  2. LEMTRADA [Suspect]
     Active Substance: ALEMTUZUMAB
     Indication: Multiple sclerosis
     Route: 058
  3. KESIMPTA [Suspect]
     Active Substance: OFATUMUMAB
     Indication: Product used for unknown indication
     Route: 065

REACTIONS (4)
  - Central nervous system lesion [Unknown]
  - Movement disorder [Unknown]
  - Headache [Unknown]
  - Product use issue [Unknown]

NARRATIVE: CASE EVENT DATE: 20180101
